FAERS Safety Report 22289462 (Version 1)
Quarter: 2023Q2

REPORT INFORMATION
  Report Type: Spontaneous
  Country: US (occurrence: None)
  Receive Date: 20230504
  Receipt Date: 20230504
  Transmission Date: 20230721
  Serious: No
  Sender: FDA-Public Use
  Company Number: None

PATIENT
  Age: 74 Year
  Sex: Female
  Weight: 87.75 kg

DRUGS (12)
  1. OFLOXACIN OPHTHALMIC [Suspect]
     Active Substance: OFLOXACIN
     Indication: Postoperative care
     Dosage: OTHER QUANTITY : 1 DROP(S);?FREQUENCY : 4 TIMES A DAY;?
     Route: 047
     Dates: start: 20220416, end: 20220610
  2. Coronary stents [Concomitant]
  3. DELZICOL [Concomitant]
     Active Substance: MESALAMINE
  4. ATENOLOL [Concomitant]
     Active Substance: ATENOLOL
  5. HYDROCHLOROTHIAZIDE [Concomitant]
     Active Substance: HYDROCHLOROTHIAZIDE
  6. MERCAPTOPURINE [Concomitant]
     Active Substance: MERCAPTOPURINE
  7. AMLODIPINE BESYLATE [Concomitant]
     Active Substance: AMLODIPINE BESYLATE
  8. Azothiroprine [Concomitant]
  9. POTASSIUM [Concomitant]
     Active Substance: POTASSIUM
  10. ASPIRIN [Concomitant]
     Active Substance: ASPIRIN
  11. VITAMINS [Concomitant]
     Active Substance: VITAMINS
  12. arthritis tylenol [Concomitant]

REACTIONS (1)
  - Cataract [None]

NARRATIVE: CASE EVENT DATE: 20220422
